FAERS Safety Report 19247164 (Version 1)
Quarter: 2021Q2

REPORT INFORMATION
  Report Type: Spontaneous
  Country: GB (occurrence: GB)
  Receive Date: 20210512
  Receipt Date: 20210512
  Transmission Date: 20210717
  Serious: Yes (Other)
  Sender: FDA-Public Use
  Company Number: GB-PFIZER INC-2021479959

PATIENT
  Age: 43 Year
  Sex: Female
  Weight: 69.85 kg

DRUGS (6)
  1. SERTRALIN [SERTRALINE] [Concomitant]
     Active Substance: SERTRALINE HYDROCHLORIDE
     Dosage: UNK
  2. AZITHROMYCIN ANHYDROUS. [Suspect]
     Active Substance: AZITHROMYCIN ANHYDROUS
     Dosage: 250 MG
     Route: 048
     Dates: start: 20210328, end: 20210330
  3. VITAMINS NOS [Concomitant]
     Active Substance: VITAMINS
     Dosage: UNK
  4. PREDNISOLON [PREDNISONE] [Concomitant]
     Active Substance: PREDNISONE
     Dosage: UNK
  5. FEXOFENADINE HYDROCHLORIDE. [Concomitant]
     Active Substance: FEXOFENADINE HYDROCHLORIDE
     Dosage: UNK
  6. CLARITHROMYCIN CITRATE [Suspect]
     Active Substance: CLARITHROMYCIN CITRATE
     Indication: SPLENECTOMY
     Dosage: 250 MG
     Route: 048
     Dates: start: 20210405, end: 20210407

REACTIONS (10)
  - Photosensitivity reaction [Unknown]
  - Furuncle [Not Recovered/Not Resolved]
  - Pruritus [Unknown]
  - Sensitive skin [Not Recovered/Not Resolved]
  - Pain of skin [Unknown]
  - Pain [Unknown]
  - Skin exfoliation [Not Recovered/Not Resolved]
  - Paraesthesia [Unknown]
  - Skin lesion [Unknown]
  - Chest discomfort [Not Recovered/Not Resolved]

NARRATIVE: CASE EVENT DATE: 20210406
